FAERS Safety Report 19641903 (Version 3)
Quarter: 2022Q3

REPORT INFORMATION
  Report Type: Spontaneous
  Country: US (occurrence: US)
  Receive Date: 20210731
  Receipt Date: 20220811
  Transmission Date: 20221027
  Serious: Yes (Death, Other)
  Sender: FDA-Public Use
  Company Number: US-AMGEN-USASP2021115918

PATIENT

DRUGS (1)
  1. CARFILZOMIB [Suspect]
     Active Substance: CARFILZOMIB
     Indication: Plasma cell myeloma
     Dosage: UNK
     Route: 065

REACTIONS (16)
  - Death [Fatal]
  - Acute myeloid leukaemia [Fatal]
  - Pneumonia [Fatal]
  - Ascites [Fatal]
  - Myelodysplastic syndrome [Fatal]
  - Respiratory failure [Fatal]
  - Plasma cell myeloma [Fatal]
  - Septic shock [Fatal]
  - B-cell lymphoma [Unknown]
  - Squamous cell carcinoma [Unknown]
  - Basal cell carcinoma [Unknown]
  - Malignant melanoma [Unknown]
  - Adenocarcinoma [Unknown]
  - Myxofibrosarcoma [Unknown]
  - Prostate cancer [Unknown]
  - Therapy non-responder [Unknown]
